FAERS Safety Report 5850579-8 (Version None)
Quarter: 2008Q3

REPORT INFORMATION
  Report Type: 
  Country: None (occurrence: None)
  Receive Date: 20080818
  Receipt Date: 20080808
  Transmission Date: 20090109
  Serious: Yes (Hospitalization)
  Sender: FDA-Public Use
  Company Number: 2008BI015947

PATIENT
  Age: 30 Year
  Sex: Female

DRUGS (2)
  1. TYSABRI [Suspect]
     Indication: MULTIPLE SCLEROSIS
     Dosage: IV; 300 MG; QM; IV
     Route: 042
     Dates: end: 20070606
  2. TYSABRI [Suspect]
     Indication: MULTIPLE SCLEROSIS
     Dosage: IV; 300 MG; QM; IV
     Route: 042
     Dates: start: 20080318

REACTIONS (3)
  - DRUG DEPENDENCE [None]
  - OVERDOSE [None]
  - SUICIDE ATTEMPT [None]
